FAERS Safety Report 7669963-5 (Version None)
Quarter: 2011Q3

REPORT INFORMATION
  Report Type: 
  Country: None (occurrence: None)
  Receive Date: 20110808
  Receipt Date: 20110804
  Transmission Date: 20111222
  Serious: Yes (Life-Threatening, Hospitalization)
  Sender: FDA-Public Use
  Company Number: BW-ABBOTT-11P-019-0844268-00

PATIENT
  Sex: Female

DRUGS (2)
  1. KALETRA [Suspect]
     Indication: HIV INFECTION
     Route: 048
  2. LAMIVUDINE + ZIDOVUDINE [Concomitant]
     Indication: HIV INFECTION
     Route: 048

REACTIONS (1)
  - ANAEMIA [None]
